FAERS Safety Report 21883808 (Version 1)
Quarter: 2023Q1

REPORT INFORMATION
  Report Type: Spontaneous
  Country: CN (occurrence: CN)
  Receive Date: 20230119
  Receipt Date: 20230119
  Transmission Date: 20230417
  Serious: Yes (Death, Other)
  Sender: FDA-Public Use
  Company Number: CN-STRIDES ARCOLAB LIMITED-2023SP000878

PATIENT
  Age: 28 Year
  Sex: Male

DRUGS (16)
  1. ETOPOSIDE [Suspect]
     Active Substance: ETOPOSIDE
     Indication: Epithelioid sarcoma
     Dosage: 80 MILLIGRAM/SQ. METER, CYCLICAL; 2 CYCLES PART OF VIDE REGIMEN- ON DAYS 1-4 EVERY 3 WEEKS
     Route: 065
     Dates: start: 201901
  2. ETOPOSIDE [Suspect]
     Active Substance: ETOPOSIDE
     Indication: Adrenal gland cancer
  3. DOXORUBICIN [Suspect]
     Active Substance: DOXORUBICIN
     Indication: Epithelioid sarcoma
     Dosage: 25 MILLIGRAM/SQ. METER, CYCLICAL; 2 CYCLES PART OF VIDE REGIMEN- ON DAYS 1-2 EVERY 3 WEEKS
     Route: 065
     Dates: start: 201901
  4. DOXORUBICIN [Suspect]
     Active Substance: DOXORUBICIN
     Indication: Adrenal gland cancer
  5. IFOSFAMIDE [Suspect]
     Active Substance: IFOSFAMIDE
     Indication: Epithelioid sarcoma
     Dosage: 1.5 GRAM PER SQUARE METRE, CYCLICAL; 2 CYCLES PART OF VIDE REGIMEN- 1.5 G/M2 ON DAYS 1-4 EVERY 3 WEE
     Route: 065
     Dates: start: 201901
  6. IFOSFAMIDE [Suspect]
     Active Substance: IFOSFAMIDE
     Indication: Adrenal gland cancer
  7. VINDESINE [Suspect]
     Active Substance: VINDESINE
     Indication: Epithelioid sarcoma
     Dosage: 2 MILLIGRAM/SQ. METER, CYCLICAL;  2 CYCLES PART OF VIDE REGIMEN; ON DAY 1 EVERY 3 WEEKS
     Route: 065
     Dates: start: 201901
  8. VINDESINE [Suspect]
     Active Substance: VINDESINE
     Indication: Adrenal gland cancer
  9. PEMBROLIZUMAB [Suspect]
     Active Substance: PEMBROLIZUMAB
     Indication: Epithelioid sarcoma
     Dosage: 200 MILLIGRAM, CYCLICAL; EVERY 3 WEEKS
     Route: 065
     Dates: start: 201902, end: 201911
  10. PEMBROLIZUMAB [Suspect]
     Active Substance: PEMBROLIZUMAB
     Indication: Adrenal gland cancer
  11. CATEQUENTINIB [Suspect]
     Active Substance: CATEQUENTINIB
     Indication: Epithelioid sarcoma
     Dosage: 12 MILLIGRAM, EVERY 3 WEEKS; ON DAYS 1-14 EVERY 3 WEEKS
     Route: 048
     Dates: start: 201912, end: 202003
  12. CATEQUENTINIB [Suspect]
     Active Substance: CATEQUENTINIB
     Indication: Adrenal gland cancer
  13. ATEZOLIZUMAB [Suspect]
     Active Substance: ATEZOLIZUMAB
     Indication: Epithelioid sarcoma metastatic
     Dosage: 1200 MILLIGRAM, EVERY 3 WEEKS
     Route: 065
     Dates: start: 202005
  14. ATEZOLIZUMAB [Suspect]
     Active Substance: ATEZOLIZUMAB
     Indication: Adrenal gland cancer
  15. METHYLPREDNISOLONE [Suspect]
     Active Substance: METHYLPREDNISOLONE
     Indication: Cardiotoxicity
     Dosage: UNK
     Route: 065
     Dates: start: 2019
  16. METHYLPREDNISOLONE [Suspect]
     Active Substance: METHYLPREDNISOLONE
     Indication: Cardiac failure

REACTIONS (4)
  - Respiratory tract infection [Fatal]
  - Community acquired infection [Fatal]
  - Myelosuppression [Unknown]
  - Drug ineffective for unapproved indication [Unknown]

NARRATIVE: CASE EVENT DATE: 20190101
